FAERS Safety Report 5705411-X (Version None)
Quarter: 2008Q2

REPORT INFORMATION
  Report Type: 
  Country: None (occurrence: None)
  Receive Date: 20080415
  Receipt Date: 20080409
  Transmission Date: 20081010
  Serious: Yes (Death, Other)
  Sender: FDA-Public Use
  Company Number: DE-BRISTOL-MYERS SQUIBB COMPANY-14147466

PATIENT
  Age: 6 Year
  Sex: Male

DRUGS (2)
  1. ETOPOSIDE [Suspect]
     Indication: BONE MARROW CONDITIONING REGIMEN
  2. RADIATION THERAPY [Suspect]
     Indication: BONE MARROW CONDITIONING REGIMEN

REACTIONS (2)
  - GRAFT VERSUS HOST DISEASE [None]
  - MALIGNANT NEOPLASM PROGRESSION [None]
